FAERS Safety Report 5777120-2 (Version None)
Quarter: 2008Q2

REPORT INFORMATION
  Report Type: 
  Country: None (occurrence: None)
  Receive Date: 20080617
  Receipt Date: 20080617
  Transmission Date: 20081010
  Serious: Yes (Hospitalization)
  Sender: FDA-Public Use
  Company Number: None

PATIENT
  Age: 82 Year
  Sex: Male

DRUGS (10)
  1. FLUOROURACIL [Suspect]
     Indication: NEOPLASM MALIGNANT
     Dates: start: 20080510, end: 20080513
  2. ALBUTEROL [Concomitant]
  3. ATENOLOL [Concomitant]
  4. ASPIRIN [Concomitant]
  5. HYDROCHLOROTHIAZIDE [Concomitant]
  6. LISINOPRIL [Concomitant]
  7. CLOPIDOGREL [Concomitant]
  8. SIMVASTATIN [Concomitant]
  9. LANSOPRAZOLE [Concomitant]
  10. ONDANSETRON [Concomitant]

REACTIONS (2)
  - DIARRHOEA [None]
  - DYSPHAGIA [None]
